FAERS Safety Report 15754232 (Version 1)
Quarter: 2018Q4

REPORT INFORMATION
  Report Type: Report from Study
  Country: None (occurrence: FR)
  Receive Date: 20181223
  Receipt Date: 20181223
  Transmission Date: 20190205
  Serious: Yes (Other)
  Sender: FDA-Public Use
  Company Number: FR-ABBVIE-18K-056-2600168-00

PATIENT
  Age: 82 Year
  Sex: Male

DRUGS (1)
  1. VENCLYXTO [Suspect]
     Active Substance: VENETOCLAX
     Indication: CHRONIC LYMPHOCYTIC LEUKAEMIA
     Dosage: REACHED MAXIMUM DOSE WAS 200 MG/DAY
     Route: 048
     Dates: start: 201712, end: 201809

REACTIONS (1)
  - Cytopenia [Unknown]
